FAERS Safety Report 6102938-6 (Version None)
Quarter: 2009Q1

REPORT INFORMATION
  Report Type: 
  Country: None (occurrence: None)
  Receive Date: 20090227
  Receipt Date: 20081204
  Transmission Date: 20090719
  Serious: Yes (Other)
  Sender: FDA-Public Use
  Company Number: FR-SEPTODONT200800225

PATIENT
  Age: 43 Year
  Sex: Female

DRUGS (3)
  1. SEPTOCAINE [Suspect]
     Indication: LOCAL ANAESTHESIA
     Dosage: 1.7 ML DENTAL
     Route: 004
     Dates: start: 20081128
  2. BIRODOGYL (SPIRAMYCIN, METRONIDAZOLE_ [Concomitant]
  3. PROPOFAN (CAFFEINE, DEXTROPROPOXYPHENE, PARACETAMOL) [Concomitant]

REACTIONS (11)
  - ASTHENIA [None]
  - DYSPHAGIA [None]
  - GASTROINTESTINAL FUNGAL INFECTION [None]
  - HYPOAESTHESIA [None]
  - IMPAIRED WORK ABILITY [None]
  - LYMPHADENOPATHY [None]
  - PAIN [None]
  - PAIN IN JAW [None]
  - PARAESTHESIA ORAL [None]
  - TYMPANIC MEMBRANE DISORDER [None]
  - WEIGHT DECREASED [None]
